FAERS Safety Report 4622315-4 (Version None)
Quarter: 2005Q1

REPORT INFORMATION
  Report Type: 
  Country: None (occurrence: None)
  Receive Date: 20050328
  Receipt Date: 20050314
  Transmission Date: 20050727
  Serious: Yes (Other)
  Sender: FDA-Public Use
  Company Number: 2005030735

PATIENT
  Sex: Male

DRUGS (1)
  1. FELDENE [Suspect]
     Indication: BACK PAIN
     Dosage: 20 MG ORAL
     Route: 048

REACTIONS (3)
  - PAIN IN EXTREMITY [None]
  - PHARMACEUTICAL PRODUCT COMPLAINT [None]
  - SCIATICA [None]
